FAERS Safety Report 13179160 (Version 1)
Quarter: 2017Q1

REPORT INFORMATION
  Report Type: Spontaneous
  Country: US (occurrence: US)
  Receive Date: 20170202
  Receipt Date: 20170202
  Transmission Date: 20170428
  Serious: Yes (Other)
  Sender: FDA-Public Use
  Company Number: US-ASTRAZENECA-2017SE09963

PATIENT
  Sex: Female

DRUGS (4)
  1. IBRANCE [Suspect]
     Active Substance: PALBOCICLIB
     Indication: BREAST CANCER METASTATIC
     Route: 048
     Dates: start: 20161027
  2. FASLODEX [Suspect]
     Active Substance: FULVESTRANT
     Indication: BREAST CANCER METASTATIC
     Dosage: DOSE UNKNOWN
     Route: 030
     Dates: start: 20160914
  3. FASLODEX [Suspect]
     Active Substance: FULVESTRANT
     Indication: BREAST CANCER METASTATIC
     Dosage: DOSE UNKNOWN
     Route: 030
     Dates: start: 20161207, end: 20170104
  4. TAMOXIFEN [Suspect]
     Active Substance: TAMOXIFEN
     Dosage: DOSE UNKNOWN
     Route: 048

REACTIONS (1)
  - Bone marrow failure [Recovered/Resolved]
